FAERS Safety Report 18998660 (Version 2)
Quarter: 2021Q4

REPORT INFORMATION
  Report Type: Spontaneous
  Country: GB (occurrence: GB)
  Receive Date: 20210312
  Receipt Date: 20211028
  Transmission Date: 20220303
  Serious: Yes (Disabling, Other)
  Sender: FDA-Public Use
  Company Number: None

PATIENT
  Age: 41 Year
  Sex: Male
  Weight: 69.85 kg

DRUGS (1)
  1. PROPECIA [Suspect]
     Active Substance: FINASTERIDE
     Indication: Ill-defined disorder
     Dosage: UNK

REACTIONS (6)
  - Insomnia [Unknown]
  - Muscle atrophy [Unknown]
  - Headache [Unknown]
  - Depression [Unknown]
  - Erectile dysfunction [Unknown]
  - Erectile dysfunction [Unknown]
